FAERS Safety Report 9714246 (Version 2)
Quarter: 2013Q4

REPORT INFORMATION
  Report Type: Spontaneous
  Country: US (occurrence: US)
  Receive Date: 20131126
  Receipt Date: 20131126
  Transmission Date: 20140711
  Serious: No
  Sender: FDA-Public Use
  Company Number: US-GILEAD-2008-0018294

PATIENT
  Age: 58 Year
  Sex: Male
  Weight: 65.32 kg

DRUGS (12)
  1. LETAIRIS [Suspect]
     Indication: PULMONARY ARTERIAL HYPERTENSION
     Route: 048
     Dates: start: 20080829, end: 20080925
  2. LETAIRIS [Suspect]
     Route: 048
     Dates: start: 20080707, end: 20080828
  3. LETAIRIS [Suspect]
     Route: 048
     Dates: start: 2008
  4. CLONAZEPAM [Concomitant]
     Route: 048
  5. PLAVIX [Concomitant]
     Route: 048
  6. OMEPRAZOLE [Concomitant]
     Route: 048
  7. ATENOLOL [Concomitant]
     Route: 048
  8. SIMVASTATIN [Concomitant]
     Route: 048
  9. PREDNISONE [Concomitant]
     Route: 048
  10. DICLOFENAC [Concomitant]
     Route: 048
  11. ADVAIR [Concomitant]
     Route: 055
  12. SPIRIVA [Concomitant]
     Route: 055

REACTIONS (5)
  - Tinnitus [Unknown]
  - Anxiety [Unknown]
  - Hot flush [Unknown]
  - Headache [Not Recovered/Not Resolved]
  - Decreased appetite [Unknown]
